FAERS Safety Report 10274287 (Version 6)
Quarter: 2015Q2

REPORT INFORMATION
  Report Type: Spontaneous
  Country: US (occurrence: US)
  Receive Date: 20140702
  Receipt Date: 20150506
  Transmission Date: 20150821
  Serious: No
  Sender: FDA-Public Use
  Company Number: US-PFIZER INC-2014178422

PATIENT
  Age: 72 Year
  Sex: Male
  Weight: 107 kg

DRUGS (11)
  1. INLYTA [Suspect]
     Active Substance: AXITINIB
     Indication: METASTATIC RENAL CELL CARCINOMA
     Dosage: 5 MG, 2X/DAY
     Route: 048
     Dates: start: 201408
  2. CLONOPIN [Concomitant]
     Active Substance: CLONAZEPAM
     Dosage: UNK, AS NEEDED
  3. INSULIN [Concomitant]
     Active Substance: INSULIN NOS
     Dosage: UNK, AS NEEDED
  4. LANTUS [Concomitant]
     Active Substance: INSULIN GLARGINE
     Dosage: 10-15 UNITS, 1X/DAY
  5. SUTENT [Suspect]
     Active Substance: SUNITINIB MALATE
     Indication: METASTATIC RENAL CELL CARCINOMA
     Dosage: 25MG TABLET ONCE A DAY, TAKEN FOR 28 DAYS ON AND 14 DAYS
     Route: 048
     Dates: start: 201304, end: 201407
  6. SUTENT [Suspect]
     Active Substance: SUNITINIB MALATE
     Indication: RENAL CANCER
  7. INLYTA [Suspect]
     Active Substance: AXITINIB
     Indication: RENAL CANCER
  8. BENICAR [Concomitant]
     Active Substance: OLMESARTAN MEDOXOMIL
     Indication: BLOOD PRESSURE
     Dosage: 20 MG, UNK
     Route: 048
  9. BENICAR [Concomitant]
     Active Substance: OLMESARTAN MEDOXOMIL
     Dosage: 40 MG, DAILY
     Route: 048
  10. HUMALOG [Concomitant]
     Active Substance: INSULIN LISPRO
     Dosage: 10-15 UNITS, 1X/DAY
  11. CLONIDINE. [Concomitant]
     Active Substance: CLONIDINE
     Dosage: 0.1 MG, 3X/DAY AS NEEDED
     Route: 048
     Dates: start: 201409

REACTIONS (8)
  - Immune system disorder [Not Recovered/Not Resolved]
  - Diarrhoea [Unknown]
  - Eye disorder [Unknown]
  - Disease progression [Unknown]
  - Metastatic renal cell carcinoma [Unknown]
  - Dysphonia [Not Recovered/Not Resolved]
  - Blood pressure fluctuation [Not Recovered/Not Resolved]
  - Aphonia [Not Recovered/Not Resolved]

NARRATIVE: CASE EVENT DATE: 2013
